FAERS Safety Report 5994023-9 (Version None)
Quarter: 2008Q4

REPORT INFORMATION
  Report Type: 
  Country: None (occurrence: None)
  Receive Date: 20081212
  Receipt Date: 20080905
  Transmission Date: 20090506
  Serious: No
  Sender: FDA-Public Use
  Company Number: US-ABBOTT-08P-163-0472251-00

PATIENT
  Sex: Female
  Weight: 82.628 kg

DRUGS (5)
  1. HUMIRA [Suspect]
     Indication: PSORIATIC ARTHROPATHY
     Route: 058
     Dates: start: 20060101, end: 20080818
  2. HUMIRA [Suspect]
     Indication: PSORIASIS
  3. KAPSOVIT [Concomitant]
     Indication: VITAMIN SUPPLEMENTATION
     Dosage: ONE DAILY
     Route: 048
  4. IBUPROFEN [Concomitant]
     Indication: INFLAMMATION
     Dates: start: 20080801
  5. IBUPROFEN [Concomitant]
     Indication: PAIN

REACTIONS (9)
  - DEPRESSION [None]
  - DRUG INEFFECTIVE [None]
  - GENITAL PAIN [None]
  - HOT FLUSH [None]
  - HYPERHIDROSIS [None]
  - PRURITUS GENITAL [None]
  - PSORIASIS [None]
  - PSORIATIC ARTHROPATHY [None]
  - PYREXIA [None]
